FAERS Safety Report 22142616 (Version 1)
Quarter: 2023Q1

REPORT INFORMATION
  Report Type: Spontaneous
  Country: GB (occurrence: GB)
  Receive Date: 20230327
  Receipt Date: 20230327
  Transmission Date: 20230418
  Serious: Yes (Disabling, Other)
  Sender: FDA-Public Use
  Company Number: None

PATIENT
  Age: 55 Year
  Sex: Male
  Weight: 75 kg

DRUGS (5)
  1. LEVOFLOXACIN [Suspect]
     Active Substance: LEVOFLOXACIN
     Indication: Respiratory tract infection
     Dosage: 750 MILLIGRAM DAILY;
     Route: 048
     Dates: start: 20210617, end: 20210717
  2. AMIKACIN [Concomitant]
     Active Substance: AMIKACIN
     Indication: Ill-defined disorder
  3. AZITHROMYCIN [Concomitant]
     Active Substance: AZITHROMYCIN
     Indication: Ill-defined disorder
  4. CLOFAZIMINE [Concomitant]
     Active Substance: CLOFAZIMINE
     Indication: Ill-defined disorder
  5. RIFABUTIN [Concomitant]
     Active Substance: RIFABUTIN
     Indication: Ill-defined disorder

REACTIONS (3)
  - Insomnia [Unknown]
  - Memory impairment [Unknown]
  - Hallucination, visual [Recovered/Resolved]
